FAERS Safety Report 10277568 (Version 1)
Quarter: 2014Q3

REPORT INFORMATION
  Report Type: Spontaneous
  Country: CA (occurrence: CA)
  Receive Date: 20140703
  Receipt Date: 20140703
  Transmission Date: 20150326
  Serious: Yes (Life-Threatening, Hospitalization)
  Sender: FDA-Public Use
  Company Number: CA-AMGEN-CANSP2014049182

PATIENT
  Age: 78 Year
  Sex: Female

DRUGS (1)
  1. PROLIA [Suspect]
     Active Substance: DENOSUMAB
     Indication: OSTEOPOROSIS POSTMENOPAUSAL
     Dosage: 60 MG/ML, UNK
     Route: 065
     Dates: start: 20121129

REACTIONS (2)
  - Intra-abdominal haemorrhage [Not Recovered/Not Resolved]
  - Knee arthroplasty [Not Recovered/Not Resolved]

NARRATIVE: CASE EVENT DATE: 2014
